FAERS Safety Report 5268088-6 (Version None)
Quarter: 2007Q1

REPORT INFORMATION
  Report Type: 
  Country: None (occurrence: None)
  Receive Date: 20070316
  Receipt Date: 20070316
  Transmission Date: 20070707
  Serious: Yes (Life-Threatening, Hospitalization)
  Sender: FDA-Public Use
  Company Number: None

PATIENT
  Sex: Male
  Weight: 74.7 kg

DRUGS (5)
  1. WARFARIN SODIUM [Suspect]
     Dosage: 5MG DAILY PO
     Route: 048
  2. ASPIRIN [Suspect]
  3. CLINDAMYCIN [Concomitant]
  4. GEMFIBROZIL [Concomitant]
  5. AMIODARONE HCL [Concomitant]

REACTIONS (5)
  - BRADYCARDIA [None]
  - CARDIAC ARREST [None]
  - HYPOTENSION [None]
  - INTERNATIONAL NORMALISED RATIO INCREASED [None]
  - UPPER GASTROINTESTINAL HAEMORRHAGE [None]
